FAERS Safety Report 25376256 (Version 1)
Quarter: 2025Q2

REPORT INFORMATION
  Report Type: Spontaneous
  Country: US (occurrence: US)
  Receive Date: 20250529
  Receipt Date: 20250529
  Transmission Date: 20250717
  Serious: Yes (Other)
  Sender: BLUEPRINT MEDICINES
  Company Number: US-Blueprint Medicines Corporation-2025-AER-01134

PATIENT
  Age: 80 Year
  Sex: Male

DRUGS (1)
  1. AYVAKIT [Suspect]
     Active Substance: AVAPRITINIB
     Indication: Chronic myeloid leukaemia
     Route: 065
     Dates: start: 20250314

REACTIONS (4)
  - Transfusion [Unknown]
  - Nausea [Recovering/Resolving]
  - Skin infection [Recovering/Resolving]
  - Off label use [Unknown]
